FAERS Safety Report 18895106 (Version 1)
Quarter: 2021Q1

REPORT INFORMATION
  Report Type: Spontaneous
  Country: GB (occurrence: GB)
  Receive Date: 20210215
  Receipt Date: 20210215
  Transmission Date: 20210420
  Serious: Yes (Life-Threatening)
  Sender: FDA-Public Use
  Company Number: GB-TEVA-2021-GB-1877004

PATIENT
  Age: 69 Year
  Sex: Male
  Weight: 69.85 kg

DRUGS (1)
  1. PREDNISOLONE. [Suspect]
     Active Substance: PREDNISOLONE
     Indication: ILL-DEFINED DISORDER
     Dosage: 30 MG, EFFECTS REDUCED ON LOWER DOSE OF 15MG.
     Route: 048
     Dates: start: 20210109

REACTIONS (2)
  - Adverse drug reaction [Recovering/Resolving]
  - Depression suicidal [Recovering/Resolving]

NARRATIVE: CASE EVENT DATE: 20210111
